FAERS Safety Report 9337162 (Version 1)
Quarter: 2013Q2

REPORT INFORMATION
  Report Type: Spontaneous
  Country: US (occurrence: US)
  Receive Date: 20130607
  Receipt Date: 20130607
  Transmission Date: 20140414
  Serious: No
  Sender: FDA-Public Use
  Company Number: US-PFIZER INC-2013173149

PATIENT
  Age: 51 Year
  Sex: Female
  Weight: 99.77 kg

DRUGS (3)
  1. LYRICA [Suspect]
     Indication: FIBROMYALGIA
     Dosage: 300 MG, 2X/DAY
     Route: 048
     Dates: end: 201304
  2. CYMBALTA [Concomitant]
     Dosage: UNK
  3. FLEXERIL [Concomitant]
     Indication: FIBROMYALGIA
     Dosage: UNK

REACTIONS (1)
  - Pain [Not Recovered/Not Resolved]
